FAERS Safety Report 13690965 (Version 1)
Quarter: 2017Q2

REPORT INFORMATION
  Report Type: Not Available
  Country: US (occurrence: US)
  Receive Date: 20170626
  Receipt Date: 20170626
  Transmission Date: 20170830
  Serious: No
  Sender: FDA-Public Use
  Company Number: US-ANIPHARMA-2017-US-000612

PATIENT
  Age: 80 Year
  Sex: Female
  Weight: 63.5 kg

DRUGS (1)
  1. HYDROCORTISONE RECTAL SUSPENSION, USP 7X60 ML [Suspect]
     Active Substance: HYDROCORTISONE
     Dosage: 1 DOSE EACH EVENING
     Route: 054
     Dates: start: 20170114

REACTIONS (2)
  - Rectal haemorrhage [Not Recovered/Not Resolved]
  - Weight increased [Not Recovered/Not Resolved]

NARRATIVE: CASE EVENT DATE: 20170115
